FAERS Safety Report 8896444 (Version 1)
Quarter: 2012Q4

REPORT INFORMATION
  Report Type: Spontaneous
  Country: US (occurrence: None)
  Receive Date: 20121107
  Receipt Date: 20121107
  Transmission Date: 20130627
  Serious: No
  Sender: FDA-Public Use
  Company Number: None

PATIENT
  Age: 53 Year
  Sex: Female
  Weight: 102.51 kg

DRUGS (1)
  1. THYROID [Suspect]
     Dosage: 1 tablet daily po
     Route: 048
     Dates: start: 20120902, end: 20121105

REACTIONS (2)
  - Dermatitis herpetiformis [None]
  - Blister [None]
